FAERS Safety Report 24696931 (Version 1)
Quarter: 2024Q4

REPORT INFORMATION
  Report Type: Spontaneous
  Country: AU (occurrence: AU)
  Receive Date: 20241204
  Receipt Date: 20241204
  Transmission Date: 20250115
  Serious: Yes (Death, Hospitalization, Other)
  Sender: BIOVITRUM
  Company Number: AU-BIOVITRUM-2024-AU-015356

PATIENT
  Age: 40 Year

DRUGS (5)
  1. ANAKINRA [Suspect]
     Active Substance: ANAKINRA
     Indication: Product used for unknown indication
     Dosage: 3 MG/KG/DAY
  2. ANAKINRA [Suspect]
     Active Substance: ANAKINRA
     Dosage: 2 MG/KG/HR
  3. ANAKINRA [Suspect]
     Active Substance: ANAKINRA
     Dosage: 8 MG/KG/DAY
  4. CYCLOPHOSPHAMIDE [Concomitant]
     Active Substance: CYCLOPHOSPHAMIDE
     Indication: Product used for unknown indication
  5. OXALIPLATIN [Concomitant]
     Active Substance: OXALIPLATIN
     Indication: Product used for unknown indication

REACTIONS (5)
  - Haemophagocytic lymphohistiocytosis [Fatal]
  - Disease progression [Fatal]
  - B-cell lymphoma [Unknown]
  - Epstein-Barr virus infection [Unknown]
  - Multiple organ dysfunction syndrome [Unknown]
